FAERS Safety Report 19860024 (Version 1)
Quarter: 2021Q3

REPORT INFORMATION
  Report Type: Report from Study
  Country: US (occurrence: US)
  Receive Date: 20210920
  Receipt Date: 20210920
  Transmission Date: 20211014
  Serious: Yes (Other)
  Sender: FDA-Public Use
  Company Number: US-TAKEDA-US-001412

PATIENT
  Age: 40 Year
  Sex: Female
  Weight: 59 kg

DRUGS (28)
  1. TEDUGLUTIDE [Suspect]
     Active Substance: TEDUGLUTIDE
     Dosage: UNK UNK, OTHER
     Route: 058
     Dates: start: 20130901, end: 20140720
  2. VITAMIN D [VITAMIN D NOS] [Concomitant]
     Active Substance: VITAMIN D NOS
     Indication: NUTRITIONAL SUPPLEMENTATION
     Dosage: 50000 UNITS, WEEKLY
     Route: 048
  3. IMODIUM [Concomitant]
     Active Substance: LOPERAMIDE HYDROCHLORIDE
     Indication: DIARRHOEA
     Dosage: 2 MG:8 TIMES A DAY
     Route: 048
  4. CALCIUM CARBONATE AND VITAMIN D [Concomitant]
     Active Substance: CALCIUM CARBONATE\VITAMIN D
     Indication: NUTRITIONAL SUPPLEMENTATION
     Dosage: 500 MG ONCE A DAY
     Route: 048
  5. WARFARIN SODIUM. [Concomitant]
     Active Substance: WARFARIN SODIUM
     Indication: PROPHYLAXIS
     Dosage: 1 MG ONCE A DAY
     Route: 048
     Dates: start: 20101010
  6. TEDUGLUTIDE [Suspect]
     Active Substance: TEDUGLUTIDE
     Indication: SHORT-BOWEL SYNDROME
     Dosage: UNK UNK, OTHER
     Route: 058
     Dates: start: 20130801, end: 201308
  7. PN/IV [Concomitant]
     Dosage: 0.81 L, 1X/DAY:QD
     Dates: start: 20131012, end: 20140419
  8. POTASSIUM CHLORIDE. [Concomitant]
     Active Substance: POTASSIUM CHLORIDE
     Indication: HYPOKALAEMIA
     Dosage: DF, BID
  9. JOLESSA [Concomitant]
     Active Substance: ETHINYL ESTRADIOL\LEVONORGESTREL
     Indication: CONTRACEPTION
     Dosage: 0.15 MG ONCE A DAY
     Route: 048
     Dates: start: 20120312
  10. PROTONIX [OMEPRAZOLE] [Concomitant]
     Active Substance: OMEPRAZOLE
     Indication: GASTROOESOPHAGEAL REFLUX DISEASE
     Dosage: 40 MG ONCE A DAY
     Route: 048
  11. LYRICA [Concomitant]
     Active Substance: PREGABALIN
     Indication: BACK PAIN
     Dosage: 100 MG ONCE A DAY
     Route: 048
     Dates: start: 20100315
  12. TEDUGLUTIDE [Suspect]
     Active Substance: TEDUGLUTIDE
     Indication: SHORT-BOWEL SYNDROME
     Dosage: UNK UNK, OTHER
     Route: 058
     Dates: start: 20130801, end: 201308
  13. TEDUGLUTIDE [Suspect]
     Active Substance: TEDUGLUTIDE
     Indication: SHORT-BOWEL SYNDROME
     Dosage: UNK UNK, OTHER
     Route: 058
     Dates: start: 20130801, end: 201308
  14. TEDUGLUTIDE [Suspect]
     Active Substance: TEDUGLUTIDE
     Dosage: UNK UNK, OTHER
     Route: 058
     Dates: start: 20130901, end: 20140720
  15. TEDUGLUTIDE [Suspect]
     Active Substance: TEDUGLUTIDE
     Dosage: UNK
     Route: 058
     Dates: start: 20140819
  16. PN/IV [Concomitant]
     Dosage: 1.01 L, UNK
     Dates: start: 20130122, end: 20131012
  17. TEDUGLUTIDE [Suspect]
     Active Substance: TEDUGLUTIDE
     Dosage: UNK UNK, OTHER
     Route: 058
     Dates: start: 20130901, end: 20140720
  18. TEDUGLUTIDE [Suspect]
     Active Substance: TEDUGLUTIDE
     Dosage: UNK UNK, OTHER
     Route: 058
     Dates: start: 20130901, end: 20140720
  19. TEDUGLUTIDE [Suspect]
     Active Substance: TEDUGLUTIDE
     Dosage: UNK
     Route: 058
     Dates: start: 20140819
  20. AMITRIPTYLINE [Concomitant]
     Active Substance: AMITRIPTYLINE
     Indication: DEPRESSION
     Dosage: 100 MG ONCE A DAY
     Route: 048
  21. PERCOCET [OXYCODONE HYDROCHLORIDE;OXYCODONE TEREPHTHALATE;PARACETAMOL] [Concomitant]
     Active Substance: ACETAMINOPHEN\OXYCODONE HYDROCHLORIDE\OXYCODONE TEREPHTHALATE
     Indication: BACK PAIN
     Dosage: 10 MG PRN
     Route: 048
     Dates: start: 20090420
  22. BACLOFEN. [Concomitant]
     Active Substance: BACLOFEN
     Indication: BACK PAIN
     Dosage: 20 MG QID
     Route: 048
     Dates: start: 200909
  23. METHADONE HCL [Concomitant]
     Active Substance: METHADONE HYDROCHLORIDE
     Indication: PAIN
     Dosage: DF
  24. TEDUGLUTIDE [Suspect]
     Active Substance: TEDUGLUTIDE
     Indication: SHORT-BOWEL SYNDROME
     Dosage: UNK UNK, OTHER
     Route: 058
     Dates: start: 20130801, end: 201308
  25. TEDUGLUTIDE [Suspect]
     Active Substance: TEDUGLUTIDE
     Dosage: UNK
     Route: 058
     Dates: start: 20140819
  26. TEDUGLUTIDE [Suspect]
     Active Substance: TEDUGLUTIDE
     Dosage: UNK
     Route: 058
     Dates: start: 20140819
  27. PN/IV [Concomitant]
     Indication: MEDICAL DIET
     Dosage: 0.31 L, THREE TIMES WEEKLY
     Dates: start: 20140510
  28. PN/IV [Concomitant]
     Dosage: 0.41 L,  THREE TIMES WEEKLY
     Dates: start: 20140419, end: 20140510

REACTIONS (1)
  - Stoma obstruction [Recovered/Resolved]

NARRATIVE: CASE EVENT DATE: 20140719
